FAERS Safety Report 6675618-6 (Version None)
Quarter: 2010Q2

REPORT INFORMATION
  Report Type: 
  Country: None (occurrence: None)
  Receive Date: 20100409
  Receipt Date: 20100402
  Transmission Date: 20101027
  Serious: Yes (Hospitalization)
  Sender: FDA-Public Use
  Company Number: TH-GENENTECH-295880

PATIENT
  Sex: Female
  Weight: 38.2 kg

DRUGS (17)
  1. RITUXIMAB [Suspect]
     Indication: DIFFUSE LARGE B-CELL LYMPHOMA
     Dosage: 375 MG/M2, UNK
     Route: 042
  2. RITUXIMAB [Suspect]
     Dosage: 484 MG, UNK
     Route: 042
  3. BLINDED BEVACIZUMAB [Suspect]
     Indication: DIFFUSE LARGE B-CELL LYMPHOMA
     Dosage: UNK
     Route: 042
     Dates: start: 20091204
  4. CYCLOPHOSPHAMIDE [Suspect]
     Indication: DIFFUSE LARGE B-CELL LYMPHOMA
     Dosage: UNK
     Route: 042
     Dates: start: 20091204
  5. DOXORUBICIN HCL [Suspect]
     Indication: DIFFUSE LARGE B-CELL LYMPHOMA
     Dosage: UNK
     Route: 042
     Dates: start: 20091204
  6. BLINDED PLACEBO [Suspect]
     Indication: DIFFUSE LARGE B-CELL LYMPHOMA
     Dosage: UNK
     Route: 042
     Dates: start: 20091204
  7. BLINDED PREDNISONE [Suspect]
     Indication: DIFFUSE LARGE B-CELL LYMPHOMA
     Dosage: UNK
     Route: 042
     Dates: start: 20091204
  8. BLINDED RITUXIMAB [Suspect]
     Indication: DIFFUSE LARGE B-CELL LYMPHOMA
     Dosage: UNK
     Route: 042
     Dates: start: 20091204
  9. VINCRISTINE [Suspect]
     Indication: DIFFUSE LARGE B-CELL LYMPHOMA
     Dosage: UNK
     Route: 042
     Dates: start: 20091204
  10. CYCLOPHOSPHAMIDE [Suspect]
     Indication: DIFFUSE LARGE B-CELL LYMPHOMA
     Dosage: 750 MG/M2, UNK
     Route: 042
  11. CYCLOPHOSPHAMIDE [Suspect]
     Dosage: 900 MG, UNK
     Route: 042
  12. DOXORUBICIN HCL [Suspect]
     Indication: DIFFUSE LARGE B-CELL LYMPHOMA
     Dosage: 50 MG/M2, UNK
     Route: 042
  13. DOXORUBICIN HCL [Suspect]
     Dosage: 60 MG, UNK
     Route: 042
  14. VINCRISTINE [Suspect]
     Indication: DIFFUSE LARGE B-CELL LYMPHOMA
     Dosage: 1.4 MG/M2, UNK
     Route: 042
  15. VINCRISTINE [Suspect]
     Dosage: 1.68 MG, UNK
     Route: 042
  16. PREDNISONE [Suspect]
     Indication: DIFFUSE LARGE B-CELL LYMPHOMA
     Dosage: 100 MG, UNK
     Route: 048
  17. PREDNISONE [Suspect]
     Route: 048

REACTIONS (12)
  - ALTERED STATE OF CONSCIOUSNESS [None]
  - BACTERIAL TEST POSITIVE [None]
  - BLISTER [None]
  - BRONCHOALVEOLAR LAVAGE ABNORMAL [None]
  - CANDIDIASIS [None]
  - CYTOMEGALOVIRUS INFECTION [None]
  - DRUG RESISTANCE [None]
  - FEBRILE NEUTROPENIA [None]
  - PNEUMONIA [None]
  - PSEUDOMONAS INFECTION [None]
  - STREPTOCOCCAL INFECTION [None]
  - WHITE BLOOD CELL COUNT DECREASED [None]
